FAERS Safety Report 18742752 (Version 1)
Quarter: 2021Q1

REPORT INFORMATION
  Report Type: Spontaneous
  Country: NO (occurrence: NO)
  Receive Date: 20210114
  Receipt Date: 20210114
  Transmission Date: 20210419
  Serious: Yes (Hospitalization, Disabling, Other)
  Sender: FDA-Public Use
  Company Number: NO-ELI_LILLY_AND_COMPANY-NO202101002018

PATIENT
  Sex: Female

DRUGS (6)
  1. CERAZETTE [DESOGESTREL] [Concomitant]
     Active Substance: DESOGESTREL
     Indication: PRODUCT USED FOR UNKNOWN INDICATION
     Dosage: 75 UG
  2. CIRCADIN [Concomitant]
     Active Substance: MELATONIN
     Indication: PRODUCT USED FOR UNKNOWN INDICATION
     Dosage: UNK
     Dates: start: 2020
  3. ZYPREXA [Suspect]
     Active Substance: OLANZAPINE
     Indication: PRODUCT USED FOR UNKNOWN INDICATION
     Dosage: UNK UNK, UNKNOWN
     Route: 048
     Dates: start: 2005
  4. OLANZAPINE TEVA [Suspect]
     Active Substance: OLANZAPINE
     Indication: RESTLESSNESS
     Dosage: 7.5 MG, UNKNOWN
     Route: 065
     Dates: start: 2020, end: 20201204
  5. OLANZAPINE TEVA [Suspect]
     Active Substance: OLANZAPINE
     Indication: ANXIETY
  6. PHENERGAN [Concomitant]
     Active Substance: PROMETHAZINE HYDROCHLORIDE
     Indication: PRODUCT USED FOR UNKNOWN INDICATION

REACTIONS (6)
  - Nerve injury [Recovering/Resolving]
  - Akathisia [Recovered/Resolved]
  - Disturbance in attention [Recovered/Resolved]
  - Hypogeusia [Recovering/Resolving]
  - Tongue injury [Recovering/Resolving]
  - Reading disorder [Recovered/Resolved]

NARRATIVE: CASE EVENT DATE: 2005
